FAERS Safety Report 16303433 (Version 1)
Quarter: 2019Q2

REPORT INFORMATION
  Report Type: Spontaneous
  Country: FR (occurrence: FR)
  Receive Date: 20190513
  Receipt Date: 20190513
  Transmission Date: 20190711
  Serious: Yes (Other)
  Sender: FDA-Public Use
  Company Number: FR-ROCHE-2315844

PATIENT
  Age: 52 Year
  Sex: Female
  Weight: 69 kg

DRUGS (2)
  1. ZELBORAF [Suspect]
     Active Substance: VEMURAFENIB
     Indication: NODULAR MELANOMA
     Route: 048
     Dates: start: 20181004, end: 20190109
  2. COTELLIC [Suspect]
     Active Substance: COBIMETINIB
     Indication: NODULAR MELANOMA
     Route: 048
     Dates: start: 20181004, end: 20190109

REACTIONS (2)
  - Left ventricular failure [Recovered/Resolved]
  - Diarrhoea [Recovered/Resolved]

NARRATIVE: CASE EVENT DATE: 20181109
